FAERS Safety Report 12815874 (Version 1)
Quarter: 2016Q4

REPORT INFORMATION
  Report Type: Spontaneous
  Country: HR (occurrence: HR)
  Receive Date: 20161005
  Receipt Date: 20161005
  Transmission Date: 20170207
  Serious: Yes (Life-Threatening, Other)
  Sender: FDA-Public Use
  Company Number: HR-GLAXOSMITHKLINE-HR2016GSK145283

PATIENT
  Age: 13 Year
  Sex: Female

DRUGS (2)
  1. LAMOTRIGINE. [Suspect]
     Active Substance: LAMOTRIGINE
     Indication: ELECTROENCEPHALOGRAM ABNORMAL
  2. PREDNISONE. [Concomitant]
     Active Substance: PREDNISONE

REACTIONS (20)
  - Acute respiratory failure [Recovering/Resolving]
  - Pupils unequal [Recovering/Resolving]
  - Drug reaction with eosinophilia and systemic symptoms [Recovering/Resolving]
  - Lymphocytosis [Recovering/Resolving]
  - Drug hypersensitivity [Recovering/Resolving]
  - Hepatomegaly [Recovering/Resolving]
  - Transaminases increased [Recovering/Resolving]
  - Hypoproteinaemia [Recovering/Resolving]
  - Muscular weakness [Recovering/Resolving]
  - Complement factor C3 decreased [Recovering/Resolving]
  - Blood creatine phosphokinase increased [Recovering/Resolving]
  - Haemothorax [Recovering/Resolving]
  - Face oedema [Recovering/Resolving]
  - Staphylococcal sepsis [Recovering/Resolving]
  - Pyrexia [Recovering/Resolving]
  - Rash generalised [Recovering/Resolving]
  - Lymphadenopathy [Recovering/Resolving]
  - Leukocytosis [Recovering/Resolving]
  - Eosinophilia [Recovering/Resolving]
  - Headache [Recovering/Resolving]
